FAERS Safety Report 21564837 (Version 1)
Quarter: 2022Q4

REPORT INFORMATION
  Report Type: Spontaneous
  Country: DE (occurrence: DE)
  Receive Date: 20221108
  Receipt Date: 20221108
  Transmission Date: 20230112
  Serious: Yes (Congenital Anomaly)
  Sender: FDA-Public Use
  Company Number: DE-EMBRYOTOX-202113872

PATIENT
  Age: 1 Day
  Sex: Male
  Weight: 3.32 kg

DRUGS (3)
  1. PREGABALIN [Suspect]
     Active Substance: PREGABALIN
     Indication: Product used for unknown indication
     Dosage: 50 [MG/D (BIS 25) ]
     Route: 064
  2. DULOXETINE [Suspect]
     Active Substance: DULOXETINE
     Indication: Product used for unknown indication
     Dosage: 90 [MG/D ]
     Route: 064
     Dates: start: 20210713, end: 20220406
  3. Comirnaty (Biontech/Pfizer) [Concomitant]
     Indication: Product used for unknown indication
     Route: 064
     Dates: start: 20211121, end: 20211121

REACTIONS (6)
  - Cryptorchism [Unknown]
  - Atrial septal defect [Unknown]
  - Ventricular septal defect [Unknown]
  - Congenital inguinal hernia [Unknown]
  - Renal aplasia [Not Recovered/Not Resolved]
  - Foetal exposure during pregnancy [Unknown]

NARRATIVE: CASE EVENT DATE: 20220401
